FAERS Safety Report 21759791 (Version 1)
Quarter: 2022Q4

REPORT INFORMATION
  Report Type: Report from Study
  Country: GB (occurrence: GB)
  Receive Date: 20221221
  Receipt Date: 20221221
  Transmission Date: 20230112
  Serious: Yes (Other)
  Sender: FDA-Public Use
  Company Number: GB-002147023-NVSC2022GB291399

PATIENT
  Sex: Male

DRUGS (1)
  1. COSENTYX [Suspect]
     Active Substance: SECUKINUMAB
     Indication: Psoriatic arthropathy
     Dosage: 150 MG, QW (ONE PEN) (WEEKS 0, 1, 2, 3)
     Route: 058
     Dates: start: 2022

REACTIONS (3)
  - Groin abscess [Unknown]
  - Pain [Unknown]
  - Rash [Unknown]
